FAERS Safety Report 8305913-6 (Version None)
Quarter: 2012Q2

REPORT INFORMATION
  Report Type: 
  Country: None (occurrence: None)
  Receive Date: 20120423
  Receipt Date: 20120416
  Transmission Date: 20120825
  Serious: Yes (Hospitalization, Other)
  Sender: FDA-Public Use
  Company Number: US-TEVA-329457USA

PATIENT
  Sex: Female
  Weight: 103.06 kg

DRUGS (3)
  1. PARAGARD T 380A [Suspect]
     Indication: CONTRACEPTION
     Route: 015
     Dates: start: 20120220, end: 20120227
  2. SERTRALINE HYDROCHLORIDE [Concomitant]
     Indication: DEPRESSION
  3. ALPRAZOLAM [Concomitant]

REACTIONS (3)
  - BREAST TENDERNESS [None]
  - ECTOPIC PREGNANCY [None]
  - FALLOPIAN TUBE DISORDER [None]
